FAERS Safety Report 17688203 (Version 8)
Quarter: 2020Q2

REPORT INFORMATION
  Report Type: Report from Study
  Country: US (occurrence: US)
  Receive Date: 20200421
  Receipt Date: 20200629
  Transmission Date: 20200714
  Serious: No
  Sender: FDA-Public Use
  Company Number: NVSC2020US105910

PATIENT
  Age: 68 Year
  Sex: Female

DRUGS (2)
  1. COSENTYX [Suspect]
     Active Substance: SECUKINUMAB
     Indication: PUSTULAR PSORIASIS
     Dosage: 300 MG, QMO
     Route: 058
     Dates: start: 20190920
  2. COSENTYX [Suspect]
     Active Substance: SECUKINUMAB
     Dosage: 300 MG, QMO
     Route: 058

REACTIONS (9)
  - Stomatitis [Recovering/Resolving]
  - Dry mouth [Recovering/Resolving]
  - Vulvovaginal pruritus [Recovering/Resolving]
  - Conjunctivitis [Recovering/Resolving]
  - Diarrhoea [Recovering/Resolving]
  - Allergic cough [Unknown]
  - Pruritus [Recovering/Resolving]
  - Glossitis [Recovering/Resolving]
  - Product use in unapproved indication [Unknown]

NARRATIVE: CASE EVENT DATE: 202005
